FAERS Safety Report 15707260 (Version 3)
Quarter: 2018Q4

REPORT INFORMATION
  Report Type: Spontaneous
  Country: US (occurrence: US)
  Receive Date: 20181210
  Receipt Date: 20181213
  Transmission Date: 20190205
  Serious: Yes (Hospitalization)
  Sender: FDA-Public Use
  Company Number: US-TEVA-2018-US-986771

PATIENT
  Age: 69 Year
  Sex: Female
  Weight: 76 kg

DRUGS (5)
  1. TRAMADOL. [Concomitant]
     Active Substance: TRAMADOL
     Indication: ARTHRALGIA
     Dates: start: 2016
  2. PREDNISONE. [Concomitant]
     Active Substance: PREDNISONE
     Indication: POLYMYALGIA RHEUMATICA
     Dates: start: 2016
  3. ATENOLOL. [Concomitant]
     Active Substance: ATENOLOL
     Indication: MIGRAINE
  4. AJOVY [Suspect]
     Active Substance: FREMANEZUMAB-VFRM
     Route: 058
     Dates: start: 20181125
  5. BACLOFEN. [Concomitant]
     Active Substance: BACLOFEN
     Indication: POLYMYALGIA RHEUMATICA
     Dates: start: 2016

REACTIONS (9)
  - Product physical issue [Unknown]
  - Injection site injury [Recovered/Resolved]
  - Urticaria [Recovered/Resolved]
  - Swelling face [Unknown]
  - Pruritus [Not Recovered/Not Resolved]
  - Injection site mass [Recovered/Resolved]
  - Liquid product physical issue [Unknown]
  - Device difficult to use [Unknown]
  - Rash erythematous [Recovered/Resolved]

NARRATIVE: CASE EVENT DATE: 20181125
